FAERS Safety Report 18420810 (Version 1)
Quarter: 2020Q4

REPORT INFORMATION
  Report Type: Spontaneous
  Country: DE (occurrence: DE)
  Receive Date: 20201023
  Receipt Date: 20201023
  Transmission Date: 20210114
  Serious: Yes (Other)
  Sender: FDA-Public Use
  Company Number: DE-BAYER-2020-222799

PATIENT
  Age: 38 Year
  Sex: Female
  Weight: 63 kg

DRUGS (1)
  1. MIRENA [Suspect]
     Active Substance: LEVONORGESTREL
     Indication: CONTRACEPTION
     Dosage: 20 ?G PER DAY CONTINUOUSLY
     Dates: start: 20171010, end: 20200709

REACTIONS (4)
  - Pelvic pain [Recovering/Resolving]
  - Panic attack [Recovering/Resolving]
  - Suicidal ideation [Recovering/Resolving]
  - Mood swings [Recovering/Resolving]
